FAERS Safety Report 9314000 (Version 1)
Quarter: 2013Q2

REPORT INFORMATION
  Report Type: Spontaneous
  Country: US (occurrence: None)
  Receive Date: 20130524
  Receipt Date: 20130524
  Transmission Date: 20140414
  Serious: Yes (Other)
  Sender: FDA-Public Use
  Company Number: None

PATIENT
  Age: 47 Year
  Sex: Female
  Weight: 65.32 kg

DRUGS (1)
  1. OMEPRAZOLE MAGNESIUM [Suspect]
     Indication: GASTRIC ULCER
     Route: 048
     Dates: start: 20111222, end: 20130415

REACTIONS (6)
  - Abnormal behaviour [None]
  - Heart rate decreased [None]
  - Volume blood decreased [None]
  - Blood pressure fluctuation [None]
  - Electrocardiogram QT prolonged [None]
  - Haematocrit decreased [None]
